FAERS Safety Report 18723929 (Version 1)
Quarter: 2021Q1

REPORT INFORMATION
  Report Type: Spontaneous
  Country: None (occurrence: US)
  Receive Date: 20210111
  Receipt Date: 20210111
  Transmission Date: 20210419
  Serious: Yes (Hospitalization, Other)
  Sender: FDA-Public Use
  Company Number: US-ORION CORPORATION ORION PHARMA-21_00012444

PATIENT
  Age: 79 Year
  Sex: Male

DRUGS (1)
  1. METHOTREXATE. [Suspect]
     Active Substance: METHOTREXATE
     Indication: IMMUNE-MEDIATED MYOSITIS
     Route: 065

REACTIONS (6)
  - Hypercalcaemia [Recovering/Resolving]
  - Immunosuppression [Recovering/Resolving]
  - Immunodeficiency [Recovering/Resolving]
  - Encephalopathy [Recovering/Resolving]
  - Product use in unapproved indication [Unknown]
  - Pneumocystis jirovecii pneumonia [Recovering/Resolving]
